FAERS Safety Report 4682847-X (Version None)
Quarter: 2005Q2

REPORT INFORMATION
  Report Type: 
  Country: None (occurrence: None)
  Receive Date: 20050602
  Receipt Date: 20050422
  Transmission Date: 20051028
  Serious: No
  Sender: FDA-Public Use
  Company Number: USA050496443

PATIENT
  Age: 51 Year
  Sex: Female
  Weight: 71 kg

DRUGS (8)
  1. CYMBALTA [Suspect]
     Indication: DEPRESSION
     Dosage: 30 MG
     Dates: start: 20050408
  2. SYNTHROID [Concomitant]
  3. PLAQUENIL [Concomitant]
  4. LEVSIN (HYOSCYAMINE SULFATE) [Concomitant]
  5. ESTRADIOL [Concomitant]
  6. TIZANIDINE HCL [Concomitant]
  7. FLEXERIL [Concomitant]
  8. VITAMINS NOS [Concomitant]

REACTIONS (7)
  - ANOREXIA [None]
  - CHEST PAIN [None]
  - DIARRHOEA [None]
  - DRY MOUTH [None]
  - DYSGEUSIA [None]
  - PHARYNGOLARYNGEAL PAIN [None]
  - WEIGHT DECREASED [None]
